FAERS Safety Report 4354977-3 (Version None)
Quarter: 2004Q2

REPORT INFORMATION
  Report Type: 
  Country: None (occurrence: None)
  Receive Date: 20040504
  Receipt Date: 20040421
  Transmission Date: 20050107
  Serious: Yes (Hospitalization)
  Sender: FDA-Public Use
  Company Number: HQWYE566222APR04

PATIENT
  Sex: Female

DRUGS (4)
  1. EFFEXOR [Suspect]
     Dosage: 150 MG 2X PER 1 DAY ORAL
     Route: 048
     Dates: start: 20040201, end: 20040401
  2. EFFEXOR [Suspect]
     Dosage: 150 MG 2X PER 1 DAY ORAL
     Route: 048
     Dates: start: 20040401
  3. ALPRAZOLAM [Concomitant]
  4. OLANZAPINE [Concomitant]

REACTIONS (5)
  - ANXIETY [None]
  - CARDIAC ARREST [None]
  - CIRCULATORY COLLAPSE [None]
  - HYPERVENTILATION [None]
  - HYPOPHOSPHATAEMIA [None]
